FAERS Safety Report 5471642-X (Version None)
Quarter: 2007Q3

REPORT INFORMATION
  Report Type: 
  Country: None (occurrence: None)
  Receive Date: 20070928
  Receipt Date: 20070226
  Transmission Date: 20080115
  Serious: No
  Sender: FDA-Public Use
  Company Number: US-BRISTOL-MYERS SQUIBB COMPANY-13692843

PATIENT
  Age: 37 Year
  Sex: Female
  Weight: 139 kg

DRUGS (15)
  1. DEFINITY [Suspect]
     Indication: ECHOCARDIOGRAM
     Dosage: 1-2 ML
     Route: 042
     Dates: start: 20070222, end: 20070222
  2. NASONEX [Concomitant]
     Route: 045
  3. CROMOLYN SODIUM [Concomitant]
  4. ALBUTEROL [Concomitant]
     Route: 055
  5. VITAMIN CAP [Concomitant]
  6. LEXAPRO [Concomitant]
  7. FEXOFENADINE HCL [Concomitant]
  8. BENZOYL PEROXIDE [Concomitant]
  9. KLARON [Concomitant]
  10. FINACEA [Concomitant]
     Route: 061
  11. BENICAR [Concomitant]
  12. LOTRISONE [Concomitant]
  13. FISH OIL [Concomitant]
  14. VITAMIN E [Concomitant]
  15. ASACOL [Concomitant]

REACTIONS (3)
  - FLUSHING [None]
  - NAUSEA [None]
  - THROAT TIGHTNESS [None]
